FAERS Safety Report 5743652-6 (Version None)
Quarter: 2008Q2

REPORT INFORMATION
  Report Type: 
  Country: None (occurrence: None)
  Receive Date: 20080516
  Receipt Date: 20080508
  Transmission Date: 20081010
  Serious: Yes (Hospitalization, Disabling)
  Sender: FDA-Public Use
  Company Number: 000894

PATIENT
  Age: 20 Year
  Sex: Male

DRUGS (6)
  1. BUSULFEX [Suspect]
     Indication: STEM CELL TRANSPLANT
     Dosage: 80 MG; 160 MG; 160 MG
     Dates: start: 20070307, end: 20070307
  2. BUSULFEX [Suspect]
     Indication: STEM CELL TRANSPLANT
     Dosage: 80 MG; 160 MG; 160 MG
     Dates: start: 20070308, end: 20070310
  3. BUSULFEX [Suspect]
     Indication: STEM CELL TRANSPLANT
     Dosage: 80 MG; 160 MG; 160 MG
     Dates: start: 20070311, end: 20070311
  4. MELPHALAN (MELPHALAN) [Concomitant]
  5. PHENYTOIN [Concomitant]
  6. LENOGRASTIM (LENOGRASTIM) [Concomitant]

REACTIONS (5)
  - ANOREXIA [None]
  - GAMMA-GLUTAMYLTRANSFERASE INCREASED [None]
  - MALAISE [None]
  - NAUSEA [None]
  - VOMITING [None]
